FAERS Safety Report 10139297 (Version 3)
Quarter: 2014Q2

REPORT INFORMATION
  Report Type: Report from Study
  Country: CA (occurrence: CA)
  Receive Date: 20140429
  Receipt Date: 20140506
  Transmission Date: 20141212
  Serious: Yes (Hospitalization)
  Sender: FDA-Public Use
  Company Number: CA-JNJFOC-20140309326

PATIENT
  Age: 53 Year
  Sex: Male
  Weight: 75 kg

DRUGS (1)
  1. REMICADE [Suspect]
     Indication: CROHN^S DISEASE
     Dosage: DURATION: 2 HOURS.
     Route: 042
     Dates: start: 20071024

REACTIONS (4)
  - Muscular weakness [Unknown]
  - Malnutrition [Unknown]
  - Oedema [Unknown]
  - Diarrhoea [Not Recovered/Not Resolved]
